FAERS Safety Report 16004604 (Version 1)
Quarter: 2019Q1

REPORT INFORMATION
  Report Type: Spontaneous
  Country: US (occurrence: US)
  Receive Date: 20190226
  Receipt Date: 20190226
  Transmission Date: 20190418
  Serious: No
  Sender: FDA-Public Use
  Company Number: US-JNJFOC-20190205111

PATIENT

DRUGS (1)
  1. TYLENOL EXTRA STRENGTH [Suspect]
     Active Substance: ACETAMINOPHEN
     Indication: PRODUCT USED FOR UNKNOWN INDICATION
     Dosage: 2 PILLS AT 2PM, 2 PILLS AT 8PM, AND 1 PILL AT 3AM
     Route: 048

REACTIONS (2)
  - Constipation [Unknown]
  - Incorrect dose administered [Unknown]
